FAERS Safety Report 5104049-5 (Version None)
Quarter: 2006Q3

REPORT INFORMATION
  Report Type: 
  Country: None (occurrence: None)
  Receive Date: 20060911
  Receipt Date: 20060830
  Transmission Date: 20061208
  Serious: Yes (Other)
  Sender: FDA-Public Use
  Company Number: 2006103584

PATIENT
  Age: 52 Year
  Sex: Male

DRUGS (2)
  1. CARDENALIN             (DOXAZOSIN) [Suspect]
     Indication: HYPERTENSION
     Dosage: 4 MG (1 IN 1 D), ORAL
     Route: 048
     Dates: start: 20040101
  2. LOSARTAN POTASSIUM [Concomitant]

REACTIONS (2)
  - FALL [None]
  - SUBARACHNOID HAEMORRHAGE [None]
